FAERS Safety Report 4354341-7 (Version None)
Quarter: 2004Q2

REPORT INFORMATION
  Report Type: 
  Country: None (occurrence: None)
  Receive Date: 20040503
  Receipt Date: 20040413
  Transmission Date: 20050107
  Serious: Yes (Death)
  Sender: FDA-Public Use
  Company Number: M-04-109

PATIENT
  Sex: Male

DRUGS (2)
  1. PACERONE [Suspect]
     Indication: DISEASE RECURRENCE
     Dosage: PO
     Route: 048
     Dates: end: 20010101
  2. PACERONE [Suspect]
     Indication: VENTRICULAR FIBRILLATION
     Dosage: PO
     Route: 048
     Dates: end: 20010101

REACTIONS (1)
  - PULMONARY TOXICITY [None]
